FAERS Safety Report 7722205-4 (Version None)
Quarter: 2011Q3

REPORT INFORMATION
  Report Type: 
  Country: None (occurrence: None)
  Receive Date: 20110831
  Receipt Date: 20110825
  Transmission Date: 20111222
  Serious: Yes (Hospitalization)
  Sender: FDA-Public Use
  Company Number: JP-JNJFOC-20110812947

PATIENT
  Age: 60 Year
  Sex: Male
  Weight: 69 kg

DRUGS (3)
  1. REMICADE [Suspect]
     Indication: COLITIS ULCERATIVE
     Route: 042
     Dates: start: 20110719
  2. REMICADE [Suspect]
     Route: 042
     Dates: start: 20110802
  3. CORTICOSTEROIDS [Suspect]
     Indication: ILL-DEFINED DISORDER

REACTIONS (1)
  - HERPES ZOSTER [None]
